FAERS Safety Report 18373108 (Version 1)
Quarter: 2020Q4

REPORT INFORMATION
  Report Type: Spontaneous
  Country: US (occurrence: US)
  Receive Date: 20201012
  Receipt Date: 20201012
  Transmission Date: 20210114
  Serious: Yes (Other)
  Sender: FDA-Public Use
  Company Number: US-BAYER-2020-217771

PATIENT
  Age: 65 Year
  Sex: Male

DRUGS (3)
  1. LEVITRA [Suspect]
     Active Substance: VARDENAFIL HYDROCHLORIDE
     Indication: ERECTILE DYSFUNCTION
     Dosage: UNK
  2. SYNTHROID [Concomitant]
     Active Substance: LEVOTHYROXINE SODIUM
     Indication: AUTOIMMUNE THYROIDITIS
     Dosage: UNK
     Dates: start: 201701
  3. LEVITRA [Suspect]
     Active Substance: VARDENAFIL HYDROCHLORIDE

REACTIONS (2)
  - Back pain [None]
  - Visual impairment [Recovered/Resolved]
